FAERS Safety Report 5528542-6 (Version None)
Quarter: 2007Q4

REPORT INFORMATION
  Report Type: 
  Country: None (occurrence: None)
  Receive Date: 20071121
  Receipt Date: 20071106
  Transmission Date: 20080405
  Serious: Yes (Other)
  Sender: FDA-Public Use
  Company Number: 8026872

PATIENT
  Age: 66 Year
  Sex: Female

DRUGS (4)
  1. XYZALL /01530201/ [Suspect]
     Indication: CONJUNCTIVITIS ALLERGIC
     Dosage: 1 DF /D PO
     Route: 048
     Dates: start: 20050101
  2. XYZALL /01530201/ [Suspect]
     Indication: PRURITUS ALLERGIC
     Dosage: 1 DF /D PO
     Route: 048
     Dates: start: 20050101
  3. XYZALL /01530201/ [Suspect]
     Indication: RHINITIS ALLERGIC
     Dosage: 1 DF /D PO
     Route: 048
     Dates: start: 20050101
  4. IRBESARTAN [Suspect]
     Indication: HYPERTENSION
     Dosage: PO
     Route: 048
     Dates: start: 20070101, end: 20071101

REACTIONS (6)
  - ABDOMINAL PAIN UPPER [None]
  - ALANINE AMINOTRANSFERASE INCREASED [None]
  - ASPARTATE AMINOTRANSFERASE INCREASED [None]
  - BLOOD ALKALINE PHOSPHATASE INCREASED [None]
  - GAMMA-GLUTAMYLTRANSFERASE INCREASED [None]
  - HEPATIC STEATOSIS [None]
